FAERS Safety Report 4315114-4 (Version None)
Quarter: 2004Q1

REPORT INFORMATION
  Report Type: 
  Country: None (occurrence: None)
  Receive Date: 20040310
  Receipt Date: 20011002
  Transmission Date: 20041129
  Serious: Yes (Death)
  Sender: FDA-Public Use
  Company Number: 11013794

PATIENT
  Sex: Male

DRUGS (1)
  1. STADOL [Suspect]
     Indication: BACK DISORDER
     Route: 042

REACTIONS (1)
  - DEATH [None]
